FAERS Safety Report 5339257-1 (Version None)
Quarter: 2007Q2

REPORT INFORMATION
  Report Type: 
  Country: None (occurrence: None)
  Receive Date: 20070322
  Receipt Date: 20061128
  Transmission Date: 20071010
  Serious: Yes (Other)
  Sender: FDA-Public Use
  Company Number: 200614384BCC

PATIENT
  Age: 79 Year
  Sex: Male
  Weight: 89.3586 kg

DRUGS (4)
  1. ALEVE (CAPLET) [Suspect]
     Indication: HEADACHE
     Dosage: 220-440 MG, QD, ORAL
     Route: 048
     Dates: start: 20060901, end: 20061019
  2. ALEVE (CAPLET) [Suspect]
     Indication: PAIN
     Dosage: 220-440 MG, QD, ORAL
     Route: 048
     Dates: start: 20060901, end: 20061019
  3. ALEVE (CAPLET) [Suspect]
     Indication: PAIN IN EXTREMITY
     Dosage: 220-440 MG, QD, ORAL
     Route: 048
     Dates: start: 20060901, end: 20061019
  4. ASPIRIN [Concomitant]

REACTIONS (1)
  - BLOOD URINE PRESENT [None]
